FAERS Safety Report 9313686 (Version 1)
Quarter: 2013Q2

REPORT INFORMATION
  Report Type: Other
  Country: JP (occurrence: JP)
  Receive Date: 20130529
  Receipt Date: 20130529
  Transmission Date: 20140414
  Serious: Yes (Other)
  Sender: FDA-Public Use
  Company Number: JP-BRISTOL-MYERS SQUIBB COMPANY-18940932

PATIENT
  Age: 39 Year
  Sex: Female

DRUGS (2)
  1. TAXOL [Suspect]
     Indication: CERVIX CARCINOMA
  2. PARAPLATIN [Suspect]
     Indication: CERVIX CARCINOMA

REACTIONS (1)
  - Posterior reversible encephalopathy syndrome [Recovered/Resolved]
